FAERS Safety Report 7767743-3 (Version None)
Quarter: 2011Q3

REPORT INFORMATION
  Report Type: 
  Country: None (occurrence: None)
  Receive Date: 20110922
  Receipt Date: 20110209
  Transmission Date: 20111222
  Serious: Yes (Other)
  Sender: FDA-Public Use
  Company Number: US-ASTRAZENECA-2007UW04362

PATIENT
  Age: 10975 Day
  Sex: Female
  Weight: 78.9 kg

DRUGS (4)
  1. SEROQUEL [Suspect]
     Indication: SLEEP DISORDER
     Route: 048
     Dates: start: 20041207, end: 20060411
  2. RISPERDAL [Concomitant]
  3. ABILIFY [Concomitant]
     Dates: start: 20040101
  4. GEODON [Concomitant]
     Dates: start: 20040101

REACTIONS (1)
  - PANCREATITIS [None]
